FAERS Safety Report 25507270 (Version 2)
Quarter: 2025Q3

REPORT INFORMATION
  Report Type: Spontaneous
  Country: US (occurrence: US)
  Receive Date: 20250703
  Receipt Date: 20250710
  Transmission Date: 20251020
  Serious: Yes (Life-Threatening, Hospitalization, Other)
  Sender: CIPLA
  Company Number: US-CIPLA (EU) LIMITED-2025US07894

PATIENT

DRUGS (7)
  1. AMLODIPINE [Suspect]
     Active Substance: AMLODIPINE BESYLATE
     Dosage: 10 MILLIGRAM, QD (BY MOUTH)
     Route: 048
  2. AMLODIPINE [Suspect]
     Active Substance: AMLODIPINE BESYLATE
     Route: 048
  3. TORSEMIDE [Interacting]
     Active Substance: TORSEMIDE
     Route: 048
  4. TORSEMIDE [Interacting]
     Active Substance: TORSEMIDE
     Route: 048
  5. APIXABAN [Suspect]
     Active Substance: APIXABAN
     Dosage: 5 MILLIGRAM, BID (BY MOUTH)
     Route: 048
  6. APIXABAN [Suspect]
     Active Substance: APIXABAN
     Route: 048
  7. SERTRALINE [Concomitant]
     Active Substance: SERTRALINE HYDROCHLORIDE
     Indication: Product used for unknown indication
     Dosage: 100 MILLIGRAM, QD (AT BEDTIME BY MOUTH)
     Route: 048

REACTIONS (6)
  - Acute kidney injury [Unknown]
  - Suicide attempt [Unknown]
  - Intentional overdose [Unknown]
  - Drug interaction [Unknown]
  - Overdose [Unknown]
  - Dizziness exertional [Unknown]
